FAERS Safety Report 16071435 (Version 1)
Quarter: 2019Q1

REPORT INFORMATION
  Report Type: Spontaneous
  Country: US (occurrence: US)
  Receive Date: 20190213
  Receipt Date: 20190213
  Transmission Date: 20190418
  Serious: No
  Sender: FDA-Public Use
  Company Number: None

PATIENT
  Age: 79 Year
  Sex: Male

DRUGS (1)
  1. CYCLOPHOSHAMIDE CAP 25MG [Suspect]
     Active Substance: CYCLOPHOSPHAMIDE
     Dates: start: 20190213

REACTIONS (3)
  - Gait inability [None]
  - Dialysis [None]
  - Hypertension [None]

NARRATIVE: CASE EVENT DATE: 20190213
